FAERS Safety Report 6204975-X (Version None)
Quarter: 2009Q2

REPORT INFORMATION
  Report Type: 
  Country: None (occurrence: None)
  Receive Date: 20090527
  Receipt Date: 20090309
  Transmission Date: 20091009
  Serious: No
  Sender: FDA-Public Use
  Company Number: US-ABBOTT-08P-163-0486846-00

PATIENT
  Sex: Male

DRUGS (7)
  1. SIMCOR [Suspect]
     Indication: HIGH DENSITY LIPOPROTEIN DECREASED
     Dosage: 500MG/20MG
     Dates: start: 20081001, end: 20081101
  2. SIMCOR [Suspect]
     Dosage: 1000MG/20MG
     Dates: start: 20081101
  3. ASPIRIN [Concomitant]
     Indication: DRUG USE FOR UNKNOWN INDICATION
     Route: 048
  4. ADVIL [Concomitant]
     Indication: DRUG USE FOR UNKNOWN INDICATION
     Dosage: TAKE AS NEEDED
     Route: 048
     Dates: start: 20081110
  5. BLOOD PRESSURE PILL [Concomitant]
     Indication: DRUG USE FOR UNKNOWN INDICATION
     Route: 048
  6. FISH OIL [Concomitant]
     Indication: DRUG USE FOR UNKNOWN INDICATION
     Route: 048
  7. MULTI-VITAMINS [Concomitant]
     Indication: DRUG USE FOR UNKNOWN INDICATION
     Route: 048

REACTIONS (3)
  - BACK PAIN [None]
  - PAIN IN EXTREMITY [None]
  - PARAESTHESIA [None]
